FAERS Safety Report 4478137-0 (Version None)
Quarter: 2004Q4

REPORT INFORMATION
  Report Type: 
  Country: None (occurrence: None)
  Receive Date: 20041018
  Receipt Date: 20041018
  Transmission Date: 20050328
  Serious: No
  Sender: FDA-Public Use
  Company Number: None

PATIENT
  Age: 42 Year
  Sex: Female
  Weight: 90.7194 kg

DRUGS (2)
  1. QUININE SULFATE [Suspect]
     Indication: RESTLESS LEGS SYNDROME
     Dosage: 1 - 2 HS PO
     Route: 048
     Dates: start: 20040716, end: 20040728
  2. QUININE SULFATE [Suspect]
     Indication: RESTLESS LEGS SYNDROME
     Dosage: 1 PILL X 1
     Dates: start: 20040921

REACTIONS (9)
  - ALANINE AMINOTRANSFERASE INCREASED [None]
  - ASPARTATE AMINOTRANSFERASE INCREASED [None]
  - BILIRUBIN CONJUGATED INCREASED [None]
  - BLOOD ALBUMIN DECREASED [None]
  - BLOOD ALKALINE PHOSPHATASE INCREASED [None]
  - BLOOD BILIRUBIN INCREASED [None]
  - INFLUENZA LIKE ILLNESS [None]
  - PRURITUS [None]
  - VOMITING [None]
